FAERS Safety Report 7158717-4 (Version None)
Quarter: 2010Q4

REPORT INFORMATION
  Report Type: 
  Country: None (occurrence: None)
  Receive Date: 20101201
  Receipt Date: 20101124
  Transmission Date: 20110411
  Serious: Yes (Death, Life-Threatening, Hospitalization, Other)
  Sender: FDA-Public Use
  Company Number: DSA_44299_2010

PATIENT
  Sex: Male

DRUGS (2)
  1. XENAZINE [Suspect]
     Indication: CHOREA
     Dosage: (12.5 MG BID ORAL)
     Route: 048
     Dates: start: 20090201, end: 20101001
  2. CLONAZEPAM [Concomitant]

REACTIONS (2)
  - INTESTINAL PERFORATION [None]
  - LYMPHOMA [None]
